FAERS Safety Report 8561474-8 (Version None)
Quarter: 2012Q3

REPORT INFORMATION
  Report Type: 
  Country: None (occurrence: None)
  Receive Date: 20120802
  Receipt Date: 20120724
  Transmission Date: 20120928
  Serious: Yes (Death, Other)
  Sender: FDA-Public Use
  Company Number: US-009507513-1207USA010321

PATIENT

DRUGS (2)
  1. FOSAMAX [Suspect]
     Dosage: UNK
     Route: 048
     Dates: start: 20060101, end: 20110401
  2. FOSAMAX [Suspect]
     Dosage: UNK
     Route: 048
     Dates: start: 20060101, end: 20110401

REACTIONS (2)
  - DEATH [None]
  - FEMUR FRACTURE [None]
